FAERS Safety Report 8873786 (Version 1)
Quarter: 2012Q4

REPORT INFORMATION
  Report Type: 
  Country: US (occurrence: US)
  Receive Date: 20121026
  Receipt Date: 20121026
  Transmission Date: 20130627
  Serious: No
  Sender: FDA-Public Use
  Company Number: US-AMGEN-USASP2012045712

PATIENT
  Sex: Female
  Weight: 104.31 kg

DRUGS (5)
  1. ENBREL [Suspect]
     Indication: PRODUCT USED FOR UNKNOWN INDICATION
     Dosage: 50 mg, qwk
     Route: 058
  2. LISINOPRIL [Concomitant]
     Dosage: 5 mg, UNK
  3. WELLBUTRIN [Concomitant]
     Dosage: 150 mg, UNK
  4. PRILOSEC                           /00661201/ [Concomitant]
     Dosage: 20 mg, UNK
  5. DICLOFENAC [Concomitant]
     Dosage: 75 mg, UNK

REACTIONS (2)
  - Pyrexia [Recovered/Resolved]
  - Viral infection [Recovered/Resolved]
